FAERS Safety Report 9199952 (Version 1)
Quarter: 2013Q1

REPORT INFORMATION
  Report Type: Spontaneous
  Country: US (occurrence: US)
  Receive Date: 20130329
  Receipt Date: 20130329
  Transmission Date: 20140127
  Serious: No
  Sender: FDA-Public Use
  Company Number: US-JHP PHARMACEUTICALS, LLC-JHP201200087

PATIENT
  Sex: 0

DRUGS (1)
  1. DANTRIUM [Suspect]
     Dosage: UNK
     Route: 042

REACTIONS (1)
  - Infusion site extravasation [Unknown]
